FAERS Safety Report 5715484-6 (Version None)
Quarter: 2008Q2

REPORT INFORMATION
  Report Type: 
  Country: None (occurrence: None)
  Receive Date: 20080422
  Receipt Date: 20080414
  Transmission Date: 20081010
  Serious: Yes (Other)
  Sender: FDA-Public Use
  Company Number: CHPA2008US06710

PATIENT
  Age: 7 Year
  Sex: Female

DRUGS (1)
  1. TRIAMINIC VAPOR PATCH UNKNOWN (NCH)(MENTHOL, CAMPHOR) TRANS-THERAPEUTI [Suspect]
     Dosage: INHALATION
     Route: 055

REACTIONS (4)
  - APPLICATION SITE BURN [None]
  - APPLICATION SITE EXFOLIATION [None]
  - APPLICATION SITE PAIN [None]
  - APPLICATION SITE SCAR [None]
